FAERS Safety Report 18602838 (Version 3)
Quarter: 2021Q1

REPORT INFORMATION
  Report Type: Report from Study
  Country: AU (occurrence: AU)
  Receive Date: 20201210
  Receipt Date: 20210309
  Transmission Date: 20210419
  Serious: Yes (Other)
  Sender: FDA-Public Use
  Company Number: AU-VERTEX PHARMACEUTICALS-2020-024236

PATIENT
  Age: 16 Year
  Sex: Female
  Weight: 64 kg

DRUGS (14)
  1. VX?445/VX?661/VX?770 [Suspect]
     Active Substance: ELEXACAFTOR\IVACAFTOR\TEZACAFTOR
     Indication: CYSTIC FIBROSIS
     Dosage: 100 MG/50MG/75 MG AND 150 MG
     Route: 048
     Dates: start: 20200520
  2. AZITHROMYCIN ANHYDROUS. [Concomitant]
     Active Substance: AZITHROMYCIN ANHYDROUS
     Indication: BRONCHIECTASIS
     Dosage: 500 MG (MON, WED, FRI)
     Route: 048
     Dates: start: 2012
  3. FLIXOTIDE [Concomitant]
     Active Substance: FLUTICASONE PROPIONATE
     Indication: CYSTIC FIBROSIS LUNG
     Dosage: 1 PUFF, MDI, BID
     Route: 055
     Dates: start: 2009
  4. CETRIZINE [Concomitant]
     Active Substance: CETIRIZINE HYDROCHLORIDE
     Indication: ECZEMA
     Dosage: 10 MG, PRN
     Route: 048
     Dates: start: 20200615
  5. PULMOZYME [Concomitant]
     Active Substance: DORNASE ALFA
     Indication: CYSTIC FIBROSIS LUNG
     Dosage: 2.5 MILLILITER, QD
     Route: 055
     Dates: start: 2010
  6. ELECTROLYTE [CHLORINE;CITRIC ACID;GLUCOSE;POTASSIUM;SODIUM] [Concomitant]
     Dosage: 1 SACHET, QD
     Route: 048
     Dates: start: 2008
  7. MALTOFER [FERRIC HYDROXIDE POLYMALTOSE COMPLEX] [Concomitant]
     Active Substance: IRON POLYMALTOSE
     Dosage: 2 DOSAGE FORM, QD
     Route: 048
     Dates: start: 20200928
  8. SALBUTAMOL [Concomitant]
     Active Substance: ALBUTEROL
     Indication: CYSTIC FIBROSIS LUNG
     Dosage: 6 PUFFS, MDI, BID
     Route: 055
     Dates: start: 2009
  9. VENTOLIN [Concomitant]
     Active Substance: ALBUTEROL SULFATE
     Indication: CYSTIC FIBROSIS LUNG
     Dosage: 4/6 PUFFS BID
     Dates: start: 2009
  10. CREON [Concomitant]
     Active Substance: PANCRELIPASE AMYLASE\PANCRELIPASE LIPASE\PANCRELIPASE PROTEASE
     Indication: PANCREATIC FAILURE
     Dosage: 10?15 CAPSULES, QD, PRN
     Route: 048
     Dates: start: 2004
  11. TOBI PODHALER [Concomitant]
     Active Substance: TOBRAMYCIN
     Indication: BACTERIAL DISEASE CARRIER
     Dosage: 112 MG, BID
     Dates: start: 20201109
  12. HYPERTONIC SALINE SOLUTION [Concomitant]
     Active Substance: SODIUM CHLORIDE
     Indication: CYSTIC FIBROSIS LUNG
     Dosage: 5 MILLILITER, BID
     Route: 055
     Dates: start: 20190629
  13. SALT [Concomitant]
     Active Substance: SODIUM CHLORIDE
     Dosage: 1 TSP, QD
     Route: 048
     Dates: start: 2004
  14. HYDROCORTISONE ACETATE. [Concomitant]
     Active Substance: HYDROCORTISONE ACETATE
     Indication: ECZEMA
     Dosage: 1 SMEAR, PRN
     Route: 061
     Dates: start: 20200617

REACTIONS (1)
  - Dupuytren^s contracture [Not Recovered/Not Resolved]

NARRATIVE: CASE EVENT DATE: 20200602
